FAERS Safety Report 4700252-4 (Version None)
Quarter: 2005Q2

REPORT INFORMATION
  Report Type: 
  Country: None (occurrence: None)
  Receive Date: 20050627
  Receipt Date: 20050613
  Transmission Date: 20051028
  Serious: Yes (Hospitalization)
  Sender: FDA-Public Use
  Company Number: FR-JNJFOC-20050604075

PATIENT
  Sex: Male

DRUGS (3)
  1. RISPERDAL CONSTA [Suspect]
     Dosage: DOSE SUSPENDED FOLLOWING THE EVENT
     Route: 030
     Dates: start: 20050504, end: 20050601
  2. DEPAKOTE [Concomitant]
     Indication: DRUG THERAPY
  3. TIAPRIDAL [Concomitant]

REACTIONS (1)
  - WATER INTOXICATION [None]
